FAERS Safety Report 8173932-9 (Version None)
Quarter: 2012Q1

REPORT INFORMATION
  Report Type: 
  Country: None (occurrence: None)
  Receive Date: 20120229
  Receipt Date: 20120225
  Transmission Date: 20120608
  Serious: Yes (Other)
  Sender: FDA-Public Use
  Company Number: US-PFIZER INC-2012050486

PATIENT
  Sex: Male
  Weight: 71 kg

DRUGS (6)
  1. RESTORIL [Concomitant]
     Dosage: UNK
  2. VALIUM [Concomitant]
     Dosage: UNK
  3. CHANTIX [Suspect]
     Indication: SMOKING CESSATION THERAPY
     Dosage: 0.5 MG, 1X/DAY
     Route: 048
     Dates: start: 20111111, end: 20111112
  4. TRAZODONE [Concomitant]
     Dosage: UNK
  5. PERCOCET [Concomitant]
     Dosage: UNK
  6. GABAPENTIN [Concomitant]
     Dosage: UNK

REACTIONS (5)
  - HAEMORRHAGE [None]
  - SCRATCH [None]
  - SKIN EXFOLIATION [None]
  - RASH [None]
  - PRURITUS [None]
